FAERS Safety Report 14208016 (Version 1)
Quarter: 2017Q4

REPORT INFORMATION
  Report Type: Spontaneous
  Country: US (occurrence: US)
  Receive Date: 20171120
  Receipt Date: 20171120
  Transmission Date: 20180321
  Serious: Yes (Hospitalization, Other)
  Sender: FDA-Public Use
  Company Number: None

PATIENT
  Age: 31 Year
  Sex: Male
  Weight: 58.5 kg

DRUGS (1)
  1. CLOBETASOL CREAM [Suspect]
     Active Substance: CLOBETASOL
     Indication: ECZEMA
     Route: 061
     Dates: start: 20070101, end: 20130315

REACTIONS (6)
  - Depression [None]
  - Withdrawal syndrome [None]
  - Pruritus [None]
  - Weight decreased [None]
  - Rash [None]
  - Alopecia [None]

NARRATIVE: CASE EVENT DATE: 20130315
